FAERS Safety Report 15185966 (Version 1)
Quarter: 2018Q3

REPORT INFORMATION
  Report Type: Report from Study
  Country: US (occurrence: US)
  Receive Date: 20180723
  Receipt Date: 20180723
  Transmission Date: 20181010
  Serious: No
  Sender: FDA-Public Use
  Company Number: US-EXELIXIS-CABO-18013892

PATIENT
  Sex: Female

DRUGS (1)
  1. CABOMETYX [Suspect]
     Active Substance: CABOZANTINIB S-MALATE
     Indication: RENAL CANCER
     Dosage: 60 MG, QD
     Route: 048
     Dates: start: 20180411

REACTIONS (7)
  - Fatigue [Unknown]
  - Dizziness [Unknown]
  - Dysgeusia [Not Recovered/Not Resolved]
  - Cough [Unknown]
  - Blood pressure increased [Unknown]
  - Diarrhoea [Not Recovered/Not Resolved]
  - Nausea [Recovered/Resolved]

NARRATIVE: CASE EVENT DATE: 2018
